FAERS Safety Report 16249342 (Version 3)
Quarter: 2019Q4

REPORT INFORMATION
  Report Type: Spontaneous
  Country: US (occurrence: US)
  Receive Date: 20190429
  Receipt Date: 20191230
  Transmission Date: 20200122
  Serious: Yes (Hospitalization, Other)
  Sender: FDA-Public Use
  Company Number: US-SA-2019SA111909

PATIENT
  Age: 48 Year
  Sex: Male

DRUGS (2)
  1. LEMTRADA [Suspect]
     Active Substance: ALEMTUZUMAB
     Indication: RELAPSING MULTIPLE SCLEROSIS
     Dosage: 12 MG, UNK
     Route: 042
     Dates: start: 20181217, end: 20181219
  2. LEMTRADA [Suspect]
     Active Substance: ALEMTUZUMAB
     Dosage: 12 MG, UNK
     Route: 042
     Dates: start: 20171211, end: 20171215

REACTIONS (3)
  - Abdominal pain [Unknown]
  - Appendicectomy [Recovered/Resolved]
  - Self-induced vomiting [Unknown]

NARRATIVE: CASE EVENT DATE: 2019
